FAERS Safety Report 17774489 (Version 2)
Quarter: 2020Q2

REPORT INFORMATION
  Report Type: Report from Study
  Country: CZ (occurrence: CZ)
  Receive Date: 20200513
  Receipt Date: 20200514
  Transmission Date: 20200714
  Serious: Yes (Hospitalization)
  Sender: FDA-Public Use
  Company Number: NVSC2020CZ121346

PATIENT
  Age: 67 Year
  Sex: Male
  Weight: 62 kg

DRUGS (21)
  1. AMOXICILLIN. [Concomitant]
     Active Substance: AMOXICILLIN
     Dosage: UNK
     Route: 065
     Dates: start: 20200427, end: 20200501
  2. KALIUM CHLORATUM [Concomitant]
     Active Substance: POTASSIUM CHLORIDE
     Indication: MYOCARDIAL ISCHAEMIA
     Route: 065
     Dates: start: 20200507, end: 20200512
  3. INSULIN MIXTARD [Concomitant]
     Active Substance: INSULIN HUMAN
     Indication: DIABETES MELLITUS
     Dosage: UNK
     Route: 065
     Dates: start: 19990101, end: 20200424
  4. COMPARATOR PEMBROLIZUMAB [Suspect]
     Active Substance: PEMBROLIZUMAB
     Indication: NON-SMALL CELL LUNG CANCER
     Dosage: 200 MG, QMO
     Route: 042
     Dates: start: 20191202, end: 20200408
  5. INSULINUM HUMANUM [Concomitant]
     Indication: DIABETES MELLITUS
     Dosage: UNK
     Route: 065
     Dates: start: 20200424, end: 20200425
  6. CANAKINUMAB. [Suspect]
     Active Substance: CANAKINUMAB
     Indication: NON-SMALL CELL LUNG CANCER
     Dosage: CODE NOT BROKEN
     Route: 058
     Dates: start: 20191202, end: 20200408
  7. ISOLYTE [Concomitant]
     Indication: HYPOGLYCAEMIA
  8. AMOXICILLIN. [Concomitant]
     Active Substance: AMOXICILLIN
     Indication: LOWER RESPIRATORY TRACT INFECTION
     Dosage: UNK
     Route: 065
     Dates: start: 20200424, end: 20200427
  9. ERDOSTEINUM [Concomitant]
     Indication: NON-SMALL CELL LUNG CANCER
     Route: 065
     Dates: start: 20200416
  10. OMEPRAZOL [Concomitant]
     Active Substance: OMEPRAZOLE
     Indication: PROPHYLAXIS AGAINST GASTROINTESTINAL ULCER
     Route: 065
     Dates: start: 20200507, end: 20200511
  11. INSULINUM HUMANUM [Concomitant]
     Dosage: UNK
     Route: 065
     Dates: start: 20200426, end: 20200427
  12. ATORVASTATIN [Concomitant]
     Active Substance: ATORVASTATIN
     Indication: HYPERLIPIDAEMIA
     Route: 065
     Dates: start: 19990101
  13. ZALDIAR [Concomitant]
     Active Substance: ACETAMINOPHEN\TRAMADOL HYDROCHLORIDE
     Indication: LOWER RESPIRATORY TRACT INFECTION
     Route: 065
     Dates: start: 20200424, end: 20200503
  14. INSULIN MIXTARD [Concomitant]
     Active Substance: INSULIN HUMAN
     Dosage: UNK
     Route: 065
     Dates: start: 20200428
  15. METFORMIN [Concomitant]
     Active Substance: METFORMIN HYDROCHLORIDE
     Indication: DIABETES MELLITUS
     Route: 065
     Dates: start: 19990101, end: 20200424
  16. RILMENIDINE [Concomitant]
     Active Substance: RILMENIDINE
     Indication: HYPERTENSION
     Route: 065
     Dates: start: 19990101
  17. GLUCOSE [Concomitant]
     Active Substance: DEXTROSE
     Indication: HYPOGLYCAEMIA
     Route: 065
     Dates: start: 20200424, end: 20200424
  18. PARACETAMOL [Concomitant]
     Active Substance: ACETAMINOPHEN
     Indication: BODY TEMPERATURE INCREASED
     Route: 065
     Dates: start: 20200506, end: 20200506
  19. ISOLYTE [Concomitant]
     Indication: LOWER RESPIRATORY TRACT INFECTION
     Route: 065
     Dates: start: 20200424, end: 20200427
  20. FENOFIBRATE. [Concomitant]
     Active Substance: FENOFIBRATE
     Indication: HYPERLIPIDAEMIA
     Route: 065
     Dates: start: 19990101
  21. BISOPROLOL [Concomitant]
     Active Substance: BISOPROLOL
     Indication: MYOCARDIAL ISCHAEMIA
     Route: 065
     Dates: start: 20191121

REACTIONS (1)
  - Diabetic neuropathy [Recovered/Resolved]

NARRATIVE: CASE EVENT DATE: 20200504
